FAERS Safety Report 8777615 (Version 1)
Quarter: 2012Q4

REPORT INFORMATION
  Report Type: 
  Country: US (occurrence: US)
  Receive Date: 20120912
  Receipt Date: 20120912
  Transmission Date: 20130627
  Serious: Yes (Life-Threatening, Hospitalization, Other)
  Sender: FDA-Public Use
  Company Number: US-ASTRAZENECA-2012SE70683

PATIENT
  Age: 65 Year
  Sex: Female

DRUGS (1)
  1. CRESTOR [Suspect]
     Route: 048

REACTIONS (7)
  - Renal artery occlusion [Unknown]
  - Obstruction [Unknown]
  - Heart rate decreased [Unknown]
  - Apparent death [Unknown]
  - Cyanosis [Unknown]
  - Stress [Unknown]
  - Hypertension [Unknown]
